FAERS Safety Report 5197488-8 (Version None)
Quarter: 2006Q4

REPORT INFORMATION
  Report Type: 
  Country: None (occurrence: None)
  Receive Date: 20061228
  Receipt Date: 20061222
  Transmission Date: 20070319
  Serious: Yes (Hospitalization)
  Sender: FDA-Public Use
  Company Number: HQWYE992222DEC06

PATIENT
  Age: 71 Year
  Sex: Female

DRUGS (1)
  1. AMIODARONE HCL [Suspect]
     Indication: ARRHYTHMIA
     Route: 048
     Dates: start: 20060306

REACTIONS (23)
  - ABDOMINAL DISTENSION [None]
  - ABDOMINAL PAIN [None]
  - ANOREXIA [None]
  - ANXIETY [None]
  - CONSTIPATION [None]
  - COORDINATION ABNORMAL [None]
  - CORNEAL DISORDER [None]
  - DEMYELINATING POLYNEUROPATHY [None]
  - DRUG LEVEL BELOW THERAPEUTIC [None]
  - DYSGEUSIA [None]
  - ERYTHEMA [None]
  - FAECAL INCONTINENCE [None]
  - GASTRITIS [None]
  - GASTROOESOPHAGEAL REFLUX DISEASE [None]
  - MASTITIS [None]
  - MUSCULAR WEAKNESS [None]
  - NIGHTMARE [None]
  - OEDEMA PERIPHERAL [None]
  - PAIN [None]
  - PRURITUS GENITAL [None]
  - SENSATION OF FOREIGN BODY [None]
  - URINARY INCONTINENCE [None]
  - VITAMIN B12 DEFICIENCY [None]
